FAERS Safety Report 14039153 (Version 1)
Quarter: 2017Q4

REPORT INFORMATION
  Report Type: Spontaneous
  Country: US (occurrence: US)
  Receive Date: 20171004
  Receipt Date: 20171004
  Transmission Date: 20180321
  Serious: Yes (Death)
  Sender: FDA-Public Use
  Company Number: None

PATIENT
  Sex: Female
  Weight: 50.4 kg

DRUGS (1)
  1. OLANZAPINE 2.5 MG TABLETS [Suspect]
     Active Substance: OLANZAPINE
     Indication: PRODUCT USED FOR UNKNOWN INDICATION
     Dosage: ?          QUANTITY:30 TABLET(S);?
     Route: 048
     Dates: start: 20160816, end: 20160819

REACTIONS (7)
  - Paranoia [None]
  - Head injury [None]
  - Seizure [None]
  - Generalised tonic-clonic seizure [None]
  - Fall [None]
  - Hip fracture [None]
  - Cerebral disorder [None]

NARRATIVE: CASE EVENT DATE: 20160820
